FAERS Safety Report 5917345-6 (Version None)
Quarter: 2008Q4

REPORT INFORMATION
  Report Type: 
  Country: None (occurrence: None)
  Receive Date: 20081014
  Receipt Date: 20081006
  Transmission Date: 20090506
  Serious: Yes (Hospitalization, Other)
  Sender: FDA-Public Use
  Company Number: US-ELI_LILLY_AND_COMPANY-US200810001571

PATIENT
  Age: 81 Year
  Sex: Female

DRUGS (6)
  1. FORTEO [Suspect]
     Dates: start: 20080101, end: 20080901
  2. COUMADIN [Concomitant]
  3. VITAMINS [Concomitant]
  4. IRON [Concomitant]
  5. CALCIUM [Concomitant]
  6. MAGNESIUM SULFATE [Concomitant]

REACTIONS (2)
  - ABDOMINAL PAIN [None]
  - COLON CANCER [None]
